FAERS Safety Report 4295292-6 (Version None)
Quarter: 2004Q1

REPORT INFORMATION
  Report Type: 
  Country: None (occurrence: None)
  Receive Date: 20040216
  Receipt Date: 20030519
  Transmission Date: 20041129
  Serious: No
  Sender: FDA-Public Use
  Company Number: US-GLAXOSMITHKLINE-A0408891A

PATIENT
  Age: 30 Year
  Sex: Female

DRUGS (4)
  1. LAMICTAL [Suspect]
     Dosage: 125MG TWICE PER DAY
     Route: 048
     Dates: start: 20030301, end: 20030519
  2. CARBAMAZEPINE [Concomitant]
     Indication: EPILEPSY
     Dosage: 300MG TWICE PER DAY
     Route: 048
  3. DEPO-PROVERA [Concomitant]
     Route: 042
  4. PRILOSEC [Concomitant]
     Dosage: 20MG PER DAY
     Route: 048

REACTIONS (2)
  - HALLUCINATION, AUDITORY [None]
  - TINNITUS [None]
